FAERS Safety Report 14782153 (Version 1)
Quarter: 2018Q2

REPORT INFORMATION
  Report Type: Spontaneous
  Country: US (occurrence: US)
  Receive Date: 20180420
  Receipt Date: 20180420
  Transmission Date: 20180711
  Serious: Yes (Death)
  Sender: FDA-Public Use
  Company Number: US-ASTRAZENECA-2018SE50982

PATIENT
  Age: 73 Year
  Sex: Male

DRUGS (1)
  1. IMFINZI [Suspect]
     Active Substance: DURVALUMAB
     Indication: NON-SMALL CELL LUNG CANCER STAGE III
     Route: 042

REACTIONS (5)
  - Cardiomyopathy [Unknown]
  - Myasthenia gravis [Fatal]
  - Troponin increased [Unknown]
  - Atrial fibrillation [Unknown]
  - Myositis [Unknown]

NARRATIVE: CASE EVENT DATE: 20180206
